FAERS Safety Report 25099263 (Version 1)
Quarter: 2025Q1

REPORT INFORMATION
  Report Type: Report from Study
  Country: US (occurrence: US)
  Receive Date: 20250320
  Receipt Date: 20250320
  Transmission Date: 20250409
  Serious: Yes (Hospitalization, Other)
  Sender: NOVARTIS
  Company Number: US-002147023-NVSC2025US044181

PATIENT
  Sex: Female

DRUGS (3)
  1. ILARIS [Suspect]
     Active Substance: CANAKINUMAB
     Indication: Pyrexia
     Dosage: 300 MG, Q4W
     Route: 058
     Dates: start: 20220210
  2. ILARIS [Suspect]
     Active Substance: CANAKINUMAB
     Dosage: 300 MG, Q4W
     Route: 058
  3. SANDOSTATIN [Concomitant]
     Active Substance: OCTREOTIDE ACETATE
     Indication: Product used for unknown indication
     Route: 065

REACTIONS (3)
  - Seizure [Unknown]
  - Urinary tract infection [Unknown]
  - Bladder spasm [Unknown]
